FAERS Safety Report 5313931-5 (Version None)
Quarter: 2007Q2

REPORT INFORMATION
  Report Type: 
  Country: None (occurrence: None)
  Receive Date: 20070501
  Receipt Date: 20070419
  Transmission Date: 20071010
  Serious: Yes (Other)
  Sender: FDA-Public Use
  Company Number: HQWYE092122JAN07

PATIENT
  Sex: Female
  Weight: 83.99 kg

DRUGS (8)
  1. EFFEXOR XR [Suspect]
     Indication: DEPRESSION
     Route: 048
     Dates: start: 19990419, end: 20061001
  2. EFFEXOR XR [Suspect]
     Route: 048
     Dates: start: 20061001, end: 20061214
  3. EFFEXOR XR [Suspect]
     Dosage: ^WEANED OFF^
     Route: 048
     Dates: start: 20061215, end: 20061221
  4. OMEGA 3 [Concomitant]
     Dosage: UNKNOWN
     Route: 065
  5. KEPPRA [Concomitant]
     Indication: CONVULSION
     Route: 048
     Dates: start: 20040101
  6. ACETYLSALICYLIC ACID SRT [Concomitant]
     Indication: PROPHYLAXIS
     Route: 048
     Dates: start: 20060101
  7. HYDROCHLOROTHIAZIDE [Concomitant]
     Indication: HYPERTENSION
     Route: 048
     Dates: start: 20010101
  8. LAMICTAL [Concomitant]
     Indication: CONVULSION
     Route: 048
     Dates: start: 20000101

REACTIONS (17)
  - AMNESIA [None]
  - ANXIETY [None]
  - CLUMSINESS [None]
  - CONDITION AGGRAVATED [None]
  - CONTUSION [None]
  - CONVULSION [None]
  - COORDINATION ABNORMAL [None]
  - DISORIENTATION [None]
  - DRUG WITHDRAWAL SYNDROME [None]
  - DYSPHAGIA [None]
  - NEUROPATHY [None]
  - PRURITUS [None]
  - SENSORY DISTURBANCE [None]
  - SOMNOLENCE [None]
  - SUICIDAL IDEATION [None]
  - UNEVALUABLE EVENT [None]
  - VISION BLURRED [None]
